FAERS Safety Report 19180547 (Version 3)
Quarter: 2021Q2

REPORT INFORMATION
  Report Type: Spontaneous
  Country: US (occurrence: US)
  Receive Date: 20210426
  Receipt Date: 20210602
  Transmission Date: 20210717
  Serious: No
  Sender: FDA-Public Use
  Company Number: US-BIOGEN-2021BI01001313

PATIENT
  Sex: Female

DRUGS (4)
  1. ALEVE [Concomitant]
     Active Substance: NAPROXEN SODIUM
     Route: 065
  2. TECFIDERA [Suspect]
     Active Substance: DIMETHYL FUMARATE
     Indication: RELAPSING-REMITTING MULTIPLE SCLEROSIS
     Route: 048
     Dates: start: 20210410, end: 20210417
  3. TECFIDERA [Suspect]
     Active Substance: DIMETHYL FUMARATE
     Route: 048
  4. LOVASTATIN. [Concomitant]
     Active Substance: LOVASTATIN
     Route: 065

REACTIONS (10)
  - Multiple sclerosis relapse [Unknown]
  - Pruritus [Recovered/Resolved]
  - Fatigue [Unknown]
  - Diarrhoea [Unknown]
  - Flushing [Recovered/Resolved]
  - Hyperchlorhydria [Unknown]
  - Abdominal discomfort [Recovered/Resolved]
  - Gastrointestinal pain [Unknown]
  - Abdominal distension [Unknown]
  - Abdominal pain upper [Unknown]
